FAERS Safety Report 22197013 (Version 1)
Quarter: 2023Q2

REPORT INFORMATION
  Report Type: Spontaneous
  Country: FR (occurrence: FR)
  Receive Date: 20230411
  Receipt Date: 20230411
  Transmission Date: 20230722
  Serious: Yes (Disabling)
  Sender: FDA-Public Use
  Company Number: FR-KOREA IPSEN Pharma-2023-08401

PATIENT
  Sex: Male

DRUGS (1)
  1. LANREOTIDE ACETATE [Suspect]
     Active Substance: LANREOTIDE ACETATE
     Indication: Product used for unknown indication
     Route: 051

REACTIONS (4)
  - Injection site induration [Recovered/Resolved]
  - Nerve compression [Unknown]
  - Back pain [Unknown]
  - Sciatica [Unknown]
